FAERS Safety Report 13292668 (Version 1)
Quarter: 2017Q1

REPORT INFORMATION
  Report Type: Spontaneous
  Country: US (occurrence: US)
  Receive Date: 20170303
  Receipt Date: 20170303
  Transmission Date: 20170428
  Serious: Yes (Hospitalization, Disabling, Other)
  Sender: FDA-Public Use
  Company Number: None

PATIENT
  Age: 15 Year
  Sex: Male
  Weight: 45 kg

DRUGS (3)
  1. MELATONIN [Concomitant]
     Active Substance: MELATONIN
  2. VALPROIC ACID. [Suspect]
     Active Substance: VALPROIC ACID
     Indication: EPILEPSY
     Dosage: ?          QUANTITY:1 TEASPOON(S);?
     Route: 048
  3. HEMP OIL [Concomitant]
     Active Substance: CANNABIS SATIVA SEED OIL

REACTIONS (2)
  - Unevaluable event [None]
  - Hypercalcaemia [None]

NARRATIVE: CASE EVENT DATE: 20160224
